FAERS Safety Report 22926270 (Version 4)
Quarter: 2023Q4

REPORT INFORMATION
  Report Type: Report from Study
  Country: US (occurrence: US)
  Receive Date: 20230909
  Receipt Date: 20231121
  Transmission Date: 20240109
  Serious: No
  Sender: FDA-Public Use
  Company Number: US-002147023-NVSC2023US195392

PATIENT
  Sex: Female
  Weight: 101.15 kg

DRUGS (2)
  1. COSENTYX [Suspect]
     Active Substance: SECUKINUMAB
     Indication: Psoriasis
     Dosage: UNK
     Route: 065
  2. METHOTREXATE [Suspect]
     Active Substance: METHOTREXATE
     Indication: Psoriasis
     Dosage: UNK
     Route: 065

REACTIONS (5)
  - Arthritis [Recovered/Resolved]
  - Fungal infection [Recovered/Resolved]
  - Hidradenitis [Recovered/Resolved]
  - Psoriasis [Unknown]
  - Therapeutic product effect incomplete [Unknown]
